FAERS Safety Report 5726747-2 (Version None)
Quarter: 2008Q2

REPORT INFORMATION
  Report Type: 
  Country: None (occurrence: None)
  Receive Date: 20080502
  Receipt Date: 20080425
  Transmission Date: 20081010
  Serious: Yes (Hospitalization, Other)
  Sender: FDA-Public Use
  Company Number: US-ABBOTT-07P-163-0422187-00

PATIENT
  Sex: Female
  Weight: 65.83 kg

DRUGS (11)
  1. HUMIRA [Suspect]
     Indication: CROHN'S DISEASE
     Route: 058
     Dates: start: 20071022, end: 20071111
  2. VITAMIN TAB [Concomitant]
     Indication: DRUG USE FOR UNKNOWN INDICATION
     Dosage: ONE PILL, 1 IN 1D
     Route: 048
     Dates: start: 20070911, end: 20071111
  3. CAFFEINE CITRATE [Concomitant]
     Indication: DRUG USE FOR UNKNOWN INDICATION
     Dosage: 1 SERVING, 1 IN 1 D
     Route: 048
     Dates: start: 20070805, end: 20070910
  4. CAFFEINE CITRATE [Concomitant]
     Dosage: 1 SERVING, 1 IN 1D
     Route: 048
     Dates: start: 20070805, end: 20071031
  5. TEA [Concomitant]
     Indication: DRUG USE FOR UNKNOWN INDICATION
     Dosage: 1 SERVING, 1 IN 1D
     Route: 048
     Dates: start: 20070911, end: 20071031
  6. COFFEE [Concomitant]
     Indication: DRUG USE FOR UNKNOWN INDICATION
     Dosage: 1 SERVING, 1 IN 1D
     Route: 048
     Dates: start: 20070911, end: 20071031
  7. COFFEE [Concomitant]
     Dosage: 10 SERVING, 1 IN 1 D
     Route: 048
     Dates: start: 20070805, end: 20070910
  8. LIQUOR [Concomitant]
     Indication: DRUG USE FOR UNKNOWN INDICATION
     Dosage: 2 SERVINGS, 1 IN 1 D
     Route: 048
     Dates: start: 20070815, end: 20070815
  9. MESALAMINE [Concomitant]
     Indication: CROHN'S DISEASE
     Route: 048
     Dates: start: 20070805, end: 20071001
  10. PARACETAMOL [Concomitant]
     Indication: CROHN'S DISEASE
     Dosage: 2 PILLS, 2 IN 1 W
     Route: 048
     Dates: start: 20070805, end: 20071022
  11. PENICILLIN [Concomitant]
     Indication: NASOPHARYNGITIS
     Dosage: 3 PILL, 7 TOTAL
     Route: 048
     Dates: start: 20071001, end: 20071031

REACTIONS (6)
  - ABORTION SPONTANEOUS [None]
  - INJECTION SITE BRUISING [None]
  - NASOPHARYNGITIS [None]
  - POST PROCEDURAL INFECTION [None]
  - PYREXIA [None]
  - RESPIRATORY TRACT INFECTION [None]
